FAERS Safety Report 20290498 (Version 1)
Quarter: 2022Q1

REPORT INFORMATION
  Report Type: Spontaneous
  Country: US (occurrence: None)
  Receive Date: 20220103
  Receipt Date: 20220103
  Transmission Date: 20220424
  Serious: Yes (unspecified)
  Sender: FDA-Public Use
  Company Number: None

PATIENT
  Age: 52 Year
  Sex: Female
  Weight: 49.95 kg

DRUGS (1)
  1. LYRICA [Suspect]
     Active Substance: PREGABALIN
     Indication: Neuralgia
     Dosage: FREQUENCY : TWICE A DAY;?
     Route: 048
     Dates: start: 20211210, end: 20211219

REACTIONS (6)
  - Heart rate abnormal [None]
  - Euphoric mood [None]
  - Hair texture abnormal [None]
  - Abdominal discomfort [None]
  - Headache [None]
  - Alopecia [None]

NARRATIVE: CASE EVENT DATE: 20211210
